FAERS Safety Report 8261942-2 (Version None)
Quarter: 2012Q2

REPORT INFORMATION
  Report Type: 
  Country: None (occurrence: None)
  Receive Date: 20120405
  Receipt Date: 20120322
  Transmission Date: 20120825
  Serious: Yes (Hospitalization)
  Sender: FDA-Public Use
  Company Number: US-CELGENEUS-163-20785-11121956

PATIENT
  Sex: Female

DRUGS (10)
  1. THALOMID [Suspect]
     Indication: MULTIPLE MYELOMA
     Dosage: 200 MILLIGRAM
     Route: 048
     Dates: start: 20111111, end: 20111207
  2. PEPCID [Concomitant]
     Dosage: 20 MILLIGRAM
     Route: 048
  3. PRISA [Concomitant]
     Dosage: 12 GRAM
     Route: 048
  4. JANUVIA [Concomitant]
     Dosage: 50 MILLIGRAM
     Route: 048
  5. CALCIUM CARBONATE [Concomitant]
     Indication: VITAMIN SUPPLEMENTATION
     Dosage: 600 MILLIGRAM
     Route: 048
  6. COREG [Concomitant]
     Dosage: 3.125 MILLIGRAM
     Route: 048
  7. ASPIRIN [Concomitant]
     Dosage: 325 MILLIGRAM
     Route: 048
  8. VITAMIN B-12 [Concomitant]
     Indication: SUPPLEMENTATION THERAPY
     Dosage: 1000 MICROGRAM
     Route: 030
  9. SYNTHROID [Concomitant]
     Indication: THYROID DISORDER
     Dosage: 150 MICROGRAM
     Route: 048
     Dates: start: 20020101
  10. LASIX [Concomitant]
     Route: 065

REACTIONS (3)
  - PERIRECTAL ABSCESS [None]
  - PANCREATITIS [None]
  - CELLULITIS [None]
